FAERS Safety Report 20321575 (Version 1)
Quarter: 2022Q1

REPORT INFORMATION
  Report Type: Spontaneous
  Country: US (occurrence: US)
  Receive Date: 20220111
  Receipt Date: 20220111
  Transmission Date: 20220423
  Serious: Yes (Hospitalization)
  Sender: FDA-Public Use
  Company Number: US-BION-010245

PATIENT
  Age: 71 Year
  Sex: Male

DRUGS (1)
  1. DICLOFENAC POTASSIUM [Suspect]
     Active Substance: DICLOFENAC POTASSIUM
     Indication: Osteoarthritis
     Dosage: DAILY

REACTIONS (2)
  - Gastrointestinal disorder [Recovered/Resolved]
  - Product use in unapproved indication [Not Recovered/Not Resolved]
